FAERS Safety Report 5076305-0 (Version None)
Quarter: 2006Q3

REPORT INFORMATION
  Report Type: 
  Country: None (occurrence: None)
  Receive Date: 20060807
  Receipt Date: 20060728
  Transmission Date: 20061208
  Serious: Yes (Life-Threatening, Other)
  Sender: FDA-Public Use
  Company Number: 2006-07-1394

PATIENT
  Age: 35 Year
  Sex: Male

DRUGS (4)
  1. BETAMETHASONE SODIUM PHOSPHATE [Suspect]
     Indication: SYSTEMIC LUPUS ERYTHEMATOSUS
     Dosage: 50 MG INTRAVENOUS
     Route: 042
     Dates: start: 20060720, end: 20060720
  2. CELESTONE [Concomitant]
  3. ALFAROL [Concomitant]
  4. ALENDRONATE SODIUM [Concomitant]

REACTIONS (1)
  - ANAPHYLACTIC SHOCK [None]
